FAERS Safety Report 14148560 (Version 2)
Quarter: 2018Q1

REPORT INFORMATION
  Report Type: Spontaneous
  Country: US (occurrence: US)
  Receive Date: 20171101
  Receipt Date: 20180329
  Transmission Date: 20180508
  Serious: Yes (Life-Threatening, Hospitalization, Other)
  Sender: FDA-Public Use
  Company Number: US-EMD SERONO-237676K06USA

PATIENT
  Age: 37 Year
  Sex: Female

DRUGS (1)
  1. REBIF [Suspect]
     Active Substance: INTERFERON BETA-1A
     Indication: MULTIPLE SCLEROSIS
     Route: 058
     Dates: start: 20030424

REACTIONS (7)
  - Diverticulitis [Unknown]
  - Multiple organ dysfunction syndrome [Unknown]
  - Anaphylactic reaction [Recovered/Resolved]
  - Malaise [Unknown]
  - Colitis ulcerative [Not Recovered/Not Resolved]
  - Dizziness [Unknown]
  - Intestinal perforation [Unknown]

NARRATIVE: CASE EVENT DATE: 2006
